FAERS Safety Report 8677492 (Version 2)
Quarter: 2012Q4

REPORT INFORMATION
  Report Type: 
  Country: US (occurrence: US)
  Receive Date: 20120723
  Receipt Date: 20120906
  Transmission Date: 20130627
  Serious: Yes (Death)
  Sender: FDA-Public Use
  Company Number: US-PFIZER INC-2012172783

PATIENT
  Age: 72 Year
  Sex: Female
  Weight: 77.1 kg

DRUGS (2)
  1. REVATIO [Suspect]
     Indication: CARDIOVASCULAR DISORDER
     Dosage: UNK
     Route: 048
     Dates: start: 201011
  2. TRACLEER [Concomitant]
     Indication: LUNG DISORDER
     Dosage: UNK
     Route: 048

REACTIONS (2)
  - Lung disorder [Fatal]
  - Oedema [Fatal]
